FAERS Safety Report 7301352-5 (Version None)
Quarter: 2011Q1

REPORT INFORMATION
  Report Type: 
  Country: None (occurrence: None)
  Receive Date: 20110218
  Receipt Date: 20110210
  Transmission Date: 20110831
  Serious: Yes (Other)
  Sender: FDA-Public Use
  Company Number: US-NOVOPROD-323216

PATIENT
  Age: 56 Year
  Sex: Female
  Weight: 137.87 kg

DRUGS (8)
  1. METFORMIN [Concomitant]
     Indication: TYPE 2 DIABETES MELLITUS
  2. GLYBURIDE [Concomitant]
     Indication: TYPE 2 DIABETES MELLITUS
  3. DYAZIDE [Concomitant]
     Indication: HYPERTENSION
  4. ONGLYZA [Concomitant]
     Indication: TYPE 2 DIABETES MELLITUS
  5. LISINOPRIL [Concomitant]
     Indication: HYPERTENSION
  6. NIFEDIPINE [Concomitant]
     Indication: HYPERTENSION
  7. NOVOLOG MIX 70/30 [Suspect]
     Indication: TYPE 2 DIABETES MELLITUS
     Dosage: 5 U, BID
     Route: 058
     Dates: start: 20110101
  8. NOVOLOG MIX 70/30 [Suspect]
     Dosage: 5 UNITS IN AM, 3 UNITS IN PM
     Route: 058
     Dates: start: 20110201

REACTIONS (3)
  - TREMOR [None]
  - HALLUCINATION [None]
  - HYPERHIDROSIS [None]
